FAERS Safety Report 9363588 (Version 3)
Quarter: 2013Q3

REPORT INFORMATION
  Report Type: Report from Study
  Country: US (occurrence: US)
  Receive Date: 20130624
  Receipt Date: 20130823
  Transmission Date: 20140515
  Serious: Yes (Hospitalization, Other)
  Sender: FDA-Public Use
  Company Number: PHEH2013US013431

PATIENT
  Age: 40 Year
  Sex: Female

DRUGS (9)
  1. GILENYA [Suspect]
     Indication: MULTIPLE SCLEROSIS
     Dosage: 0.5 MG, QD
     Route: 048
     Dates: start: 20110411
  2. BACLOFEN [Concomitant]
  3. SERTRALINE [Concomitant]
  4. ALPRAZOLAM [Concomitant]
  5. CETRIZINE [Concomitant]
  6. SYNTHROID [Concomitant]
  7. PRAVASTATIN [Concomitant]
  8. GRALISE [Concomitant]
  9. MECLIZINE [Concomitant]

REACTIONS (18)
  - Rhabdomyolysis [Unknown]
  - Blood creatine phosphokinase increased [Unknown]
  - Renal failure acute [Unknown]
  - Blood urea increased [Unknown]
  - Blood creatinine increased [Unknown]
  - Diarrhoea [Unknown]
  - Fall [Recovering/Resolving]
  - Dysstasia [Unknown]
  - Haematocrit decreased [Unknown]
  - Red blood cell count decreased [Unknown]
  - Local swelling [Unknown]
  - Skin discolouration [Unknown]
  - Haemoglobin decreased [Unknown]
  - Neutrophil percentage increased [Unknown]
  - Alanine aminotransferase increased [Unknown]
  - Aspartate aminotransferase increased [Unknown]
  - White blood cell count decreased [Unknown]
  - Lymphocyte count decreased [Unknown]
